FAERS Safety Report 11553296 (Version 1)
Quarter: 2015Q3

REPORT INFORMATION
  Report Type: Spontaneous
  Country: NL (occurrence: NL)
  Receive Date: 20150925
  Receipt Date: 20150925
  Transmission Date: 20151125
  Serious: Yes (Other)
  Sender: FDA-Public Use
  Company Number: NL-SHENZHEN TECHDOW PHARMACEUTICAL CO. LTD-NL-2015TEC0000035

PATIENT

DRUGS (3)
  1. HEPARIN LMW [Concomitant]
     Active Substance: UNSPECIFIED INGREDIENT
     Indication: ANTICOAGULANT THERAPY
     Dosage: UNK
  2. PHENPROCOUMON [Concomitant]
     Active Substance: PHENPROCOUMON
     Indication: ANTICOAGULANT THERAPY
     Dosage: VARIABLE DOSE; UNK
  3. HEPARIN SODIUM INJECTION USP, PRESERVATIVE FREE (HEPARIN SODIUM) INJECTION [Suspect]
     Active Substance: HEPARIN SODIUM
     Indication: ANTICOAGULANT THERAPY
     Dosage: UNK
     Route: 058

REACTIONS (6)
  - Caesarean section [Unknown]
  - Premature baby [Unknown]
  - Anticoagulation drug level below therapeutic [Unknown]
  - Cardiac failure congestive [Unknown]
  - Cardiac valve replacement complication [Unknown]
  - Exposure during pregnancy [Unknown]
